FAERS Safety Report 18455955 (Version 3)
Quarter: 2020Q4

REPORT INFORMATION
  Report Type: Report from Study
  Country: US (occurrence: US)
  Receive Date: 20201102
  Receipt Date: 20201217
  Transmission Date: 20210114
  Serious: Yes (Hospitalization, Other)
  Sender: FDA-Public Use
  Company Number: US-TAIHO ONCOLOGY  INC-EU-2020-00847

PATIENT
  Age: 82 Year
  Sex: Female
  Weight: 54.48 kg

DRUGS (13)
  1. FEROSUL [Concomitant]
     Active Substance: FERROUS SULFATE
  2. HYDROMORPHON [Concomitant]
     Active Substance: HYDROMORPHONE
  3. LONSURF [Suspect]
     Active Substance: TIPIRACIL HYDROCHLORIDE\TRIFLURIDINE
     Indication: RECTAL CANCER
  4. LEVOTHYROXIN [Concomitant]
     Active Substance: LEVOTHYROXINE
  5. MULTIPLE VITAMIN [Concomitant]
     Active Substance: VITAMINS
  6. CALCIUM 600 [Concomitant]
     Active Substance: CALCIUM
  7. VITAMIN E [Concomitant]
     Active Substance: .ALPHA.-TOCOPHEROL
  8. PRAVASTATIN. [Concomitant]
     Active Substance: PRAVASTATIN
  9. VITAMIN D [Concomitant]
     Active Substance: VITAMIN D NOS
  10. OMEGA- 3 [Concomitant]
  11. LONSURF [Suspect]
     Active Substance: TIPIRACIL HYDROCHLORIDE\TRIFLURIDINE
     Indication: COLON CANCER
     Dosage: CYCLE 1, CURRENT CYCLE UNKNOWN
     Route: 048
     Dates: start: 201911
  12. OMEGA 3 FISH [Concomitant]
  13. LORAZEPAM. [Concomitant]
     Active Substance: LORAZEPAM

REACTIONS (21)
  - Somnolence [Unknown]
  - Decreased appetite [Unknown]
  - Weight decreased [Unknown]
  - Hypotension [Unknown]
  - Alopecia [Unknown]
  - Fatigue [Not Recovered/Not Resolved]
  - Cytopenia [Unknown]
  - Platelet count decreased [Not Recovered/Not Resolved]
  - Product dose omission issue [Unknown]
  - Disease progression [Recovered/Resolved]
  - Skin wrinkling [Not Recovered/Not Resolved]
  - Dizziness [Unknown]
  - Asthenia [Unknown]
  - Muscle spasms [Unknown]
  - Renal disorder [Not Recovered/Not Resolved]
  - Cholecystectomy [Unknown]
  - Insomnia [Not Recovered/Not Resolved]
  - Haemoglobin decreased [Not Recovered/Not Resolved]
  - White blood cell count decreased [Not Recovered/Not Resolved]
  - Dyspnoea [Not Recovered/Not Resolved]
  - Urinary tract infection [Not Recovered/Not Resolved]

NARRATIVE: CASE EVENT DATE: 2020
